FAERS Safety Report 17363091 (Version 1)
Quarter: 2020Q1

REPORT INFORMATION
  Report Type: Spontaneous
  Country: JP (occurrence: JP)
  Receive Date: 20200203
  Receipt Date: 20200203
  Transmission Date: 20200409
  Serious: Yes (Death, Other)
  Sender: FDA-Public Use
  Company Number: JP-SYNEX-T201905619

PATIENT

DRUGS (1)
  1. INOFLO [Suspect]
     Active Substance: NITRIC OXIDE
     Indication: NEWBORN PERSISTENT PULMONARY HYPERTENSION
     Dosage: UNK, PER INHALATION
     Route: 055

REACTIONS (6)
  - Catheter placement [Unknown]
  - Disease progression [Fatal]
  - Anuria [Unknown]
  - Peritonitis [Unknown]
  - Azotaemia [Fatal]
  - Product use issue [Unknown]
